FAERS Safety Report 10627270 (Version 1)
Quarter: 2014Q4

REPORT INFORMATION
  Report Type: Spontaneous
  Country: GB (occurrence: GB)
  Receive Date: 20141204
  Receipt Date: 20141204
  Transmission Date: 20150529
  Serious: Yes (Death, Other)
  Sender: FDA-Public Use
  Company Number: GB-TEVA-524366ISR

PATIENT
  Age: 59 Year
  Sex: Male
  Weight: 57.15 kg

DRUGS (18)
  1. QUININE SULPHATE [Concomitant]
     Active Substance: QUININE SULFATE
  2. RAMIPRIL. [Concomitant]
     Active Substance: RAMIPRIL
  3. SERETIDE [Concomitant]
     Active Substance: FLUTICASONE FUROATE\SALMETEROL XINAFOATE
     Route: 055
  4. ADIZEM-XL [Concomitant]
     Active Substance: DILTIAZEM HYDROCHLORIDE
  5. GABAPENTIN. [Concomitant]
     Active Substance: GABAPENTIN
  6. ZOPICLONE [Concomitant]
     Active Substance: ZOPICLONE
  7. SIMVASTATIN. [Concomitant]
     Active Substance: SIMVASTATIN
  8. FERROUS SULFATE [Concomitant]
     Active Substance: FERROUS SULFATE\FERROUS SULFATE, DRIED
  9. COCODAMOL [Concomitant]
     Active Substance: ACETAMINOPHEN\CODEINE PHOSPHATE
     Dosage: 30/500MG TABLETS
  10. CO-AMOXICLAV [Concomitant]
     Active Substance: AMOXICILLIN\CLAVULANIC ACID
  11. LAXIDO [Concomitant]
     Active Substance: POLYETHYLENE GLYCOL 3350\POTASSIUM CHLORIDE\SODIUM BICARBONATE\SODIUM CHLORIDE
  12. ASPIRIN. [Concomitant]
     Active Substance: ASPIRIN
  13. BRICANYL [Concomitant]
     Active Substance: TERBUTALINE SULFATE
     Route: 055
  14. SPIRIVA [Concomitant]
     Active Substance: TIOTROPIUM BROMIDE MONOHYDRATE
     Route: 055
  15. ALENDRONIC ACID [Suspect]
     Active Substance: ALENDRONIC ACID
     Dosage: START AND FINISH DATES UNKNOWN. DOSAGE UNKNOWN. BUT DEATH WAS SUDDEN
     Route: 048
  16. LEVOTHYROXINE [Concomitant]
     Active Substance: LEVOTHYROXINE
  17. OMEPRAZOLE. [Concomitant]
     Active Substance: OMEPRAZOLE
  18. PREDNISOLONE. [Concomitant]
     Active Substance: PREDNISOLONE

REACTIONS (1)
  - Death [Fatal]
